FAERS Safety Report 15282614 (Version 1)
Quarter: 2018Q3

REPORT INFORMATION
  Report Type: Report from Study
  Country: NL (occurrence: NL)
  Receive Date: 20180816
  Receipt Date: 20180816
  Transmission Date: 20181010
  Serious: Yes (Hospitalization)
  Sender: FDA-Public Use
  Company Number: NL-AMGEN-NLDSL2018111911

PATIENT
  Age: 76 Year
  Sex: Male

DRUGS (1)
  1. XGEVA [Suspect]
     Active Substance: DENOSUMAB
     Indication: PROPHYLAXIS
     Dosage: 120 MG IN 1.70ML, Q4WK
     Route: 058

REACTIONS (2)
  - Blood test abnormal [Recovering/Resolving]
  - Blood calcium abnormal [Recovering/Resolving]

NARRATIVE: CASE EVENT DATE: 20180725
